APPROVED DRUG PRODUCT: NORVIR
Active Ingredient: RITONAVIR
Strength: 100MG
Dosage Form/Route: CAPSULE;ORAL
Application: N020680 | Product #001
Applicant: ABBOTT LABORATORIES PHARMACEUTICAL PRODUCTS DIV
Approved: Mar 1, 1996 | RLD: No | RS: No | Type: DISCN